FAERS Safety Report 12289451 (Version 1)
Quarter: 2016Q2

REPORT INFORMATION
  Report Type: Spontaneous
  Country: US (occurrence: None)
  Receive Date: 20160420
  Receipt Date: 20160420
  Transmission Date: 20160815
  Serious: No
  Sender: FDA-Public Use
  Company Number: None

PATIENT
  Sex: Female

DRUGS (1)
  1. MORPHINE, 5MG/10ML HOSPIRA [Suspect]
     Active Substance: MORPHINE SULFATE
     Indication: PROCEDURAL PAIN
     Route: 037
     Dates: start: 20160418, end: 20160418

REACTIONS (2)
  - Product contamination [None]
  - Hypothermia [None]

NARRATIVE: CASE EVENT DATE: 20160418
